FAERS Safety Report 22237681 (Version 1)
Quarter: 2023Q2

REPORT INFORMATION
  Report Type: Spontaneous
  Country: JP (occurrence: JP)
  Receive Date: 20230421
  Receipt Date: 20230421
  Transmission Date: 20230721
  Serious: Yes (Death)
  Sender: FDA-Public Use
  Company Number: JP-SUN PHARMACEUTICAL INDUSTRIES LTD-2023RR-385818

PATIENT
  Age: 65 Year
  Sex: Male

DRUGS (13)
  1. GEMCITABINE [Suspect]
     Active Substance: GEMCITABINE
     Indication: Small cell lung cancer
     Dosage: CDDP + GEMCITABINE
     Route: 065
  2. CISPLATIN [Suspect]
     Active Substance: CISPLATIN
     Indication: Small cell lung cancer
     Dosage: 80 MG/M^2, DAY 1 + ETOPOSIDE (ETP) 100 MG/M^2, DAY 1-3
     Route: 065
  3. CISPLATIN [Suspect]
     Active Substance: CISPLATIN
     Dosage: 80 MG/M^2, DAY 1
     Route: 065
  4. DOCETAXEL [Suspect]
     Active Substance: DOCETAXEL
     Indication: Small cell lung cancer
     Dosage: DOCETAXEL (DTX) + RAMUCIRUMAB
     Route: 065
  5. CARBOPLATIN [Suspect]
     Active Substance: CARBOPLATIN
     Indication: Small cell lung cancer
     Dosage: 120 MILLIGRAM, FOR 12 COURSES AS FOURTH-LINE
     Route: 065
  6. ETOPOSIDE [Suspect]
     Active Substance: ETOPOSIDE
     Indication: Small cell lung cancer
     Dosage: 80 MG/M^2, DAY 1 + ETOPOSIDE (ETP) 100 MG/M^2, DAY 1-3
     Route: 065
  7. ETOPOSIDE [Suspect]
     Active Substance: ETOPOSIDE
     Dosage: 100 MG/M^2, DAY 1-3
     Route: 065
  8. PACLITAXEL [Suspect]
     Active Substance: PACLITAXEL
     Indication: Small cell lung cancer
     Dosage: 120 MILLIGRAM, FOR 12 COURSES AS FOURTH-LINE
     Route: 065
  9. RAMUCIRUMAB [Concomitant]
     Active Substance: RAMUCIRUMAB
     Indication: Small cell lung cancer
     Dosage: DOCETAXEL (DTX) + RAMUCIRUMAB
     Route: 065
  10. TEGAFUR [Concomitant]
     Active Substance: TEGAFUR
     Indication: Small cell lung cancer
     Dosage: UNK
     Route: 065
  11. GIMERACIL [Concomitant]
     Active Substance: GIMERACIL
     Indication: Small cell lung cancer
     Dosage: UNK
     Route: 065
  12. OTERACIL POTASSIUM [Concomitant]
     Active Substance: OTERACIL POTASSIUM
     Indication: Small cell lung cancer
     Dosage: UNK
     Route: 065
  13. NIVOLUMAB [Concomitant]
     Active Substance: NIVOLUMAB
     Indication: Small cell lung cancer
     Dosage: UNK
     Route: 065

REACTIONS (1)
  - Disease progression [Fatal]
